FAERS Safety Report 9012755 (Version 1)
Quarter: 2013Q1

REPORT INFORMATION
  Report Type: Spontaneous
  Country: GB (occurrence: GB)
  Receive Date: 20130114
  Receipt Date: 20130114
  Transmission Date: 20140127
  Serious: Yes (Death, Hospitalization, Other)
  Sender: FDA-Public Use
  Company Number: GB-ABBOTT-13P-167-1035057-00

PATIENT
  Age: 10 Month
  Sex: Female

DRUGS (6)
  1. ERYTHROCIN [Suspect]
     Indication: NASOPHARYNGITIS
     Route: 065
     Dates: start: 20121126
  2. DIAZEPAM [Suspect]
     Indication: CONVULSION
     Route: 054
     Dates: start: 20121127, end: 20121127
  3. BUCCOLAM [Suspect]
     Indication: CONVULSION
     Dosage: OROMUCOSAL USE
     Dates: start: 2012
  4. PHENYTOIN [Suspect]
     Indication: CONVULSION
     Route: 042
     Dates: start: 20121127, end: 20121127
  5. LEVETIRACETAM [Concomitant]
     Indication: EPILEPSY
     Dates: start: 2012
  6. VALPROATE SODIUM [Concomitant]
     Indication: EPILEPSY
     Dates: start: 2012

REACTIONS (6)
  - Cardiac arrest neonatal [Fatal]
  - Drug interaction [Fatal]
  - Hypoventilation [Fatal]
  - Drug ineffective [Fatal]
  - Respiratory acidosis [Fatal]
  - Tachycardia [Fatal]
